FAERS Safety Report 22192500 (Version 1)
Quarter: 2023Q2

REPORT INFORMATION
  Report Type: Spontaneous
  Country: US (occurrence: None)
  Receive Date: 20230410
  Receipt Date: 20230410
  Transmission Date: 20230722
  Serious: No
  Sender: FDA-Public Use
  Company Number: None

PATIENT
  Age: 88 Year
  Sex: Male

DRUGS (1)
  1. CAPECITABINE [Suspect]
     Active Substance: CAPECITABINE
     Dosage: FREQUENCY : TWICE A DAY;?
     Route: 048

REACTIONS (13)
  - Fall [None]
  - Haematological infection [None]
  - Pyrexia [None]
  - Asthenia [None]
  - Asthenia [None]
  - Fluid retention [None]
  - Weight increased [None]
  - Malaise [None]
  - Nausea [None]
  - Vomiting [None]
  - Diarrhoea [None]
  - Heart rate irregular [None]
  - Therapy interrupted [None]

NARRATIVE: CASE EVENT DATE: 20230410
